FAERS Safety Report 5498848-8 (Version None)
Quarter: 2007Q4

REPORT INFORMATION
  Report Type: 
  Country: None (occurrence: None)
  Receive Date: 20071026
  Receipt Date: 20070809
  Transmission Date: 20080405
  Serious: No
  Sender: FDA-Public Use
  Company Number: A0666528A

PATIENT
  Age: 88 Year
  Sex: Female

DRUGS (18)
  1. ADVAIR DISKUS 100/50 [Suspect]
     Indication: DRUG USE FOR UNKNOWN INDICATION
     Dosage: 250MG TWICE PER DAY
     Route: 055
  2. ACTOS [Concomitant]
  3. GLYBURIDE [Concomitant]
  4. LASIX [Concomitant]
  5. VITAMIN D [Concomitant]
  6. CENTRAX [Concomitant]
  7. COREG [Concomitant]
  8. SINGULAIR [Concomitant]
  9. HYZAAR [Concomitant]
  10. LIPITOR [Concomitant]
  11. LEVAXIN (LEVOTHYROXIN) [Concomitant]
  12. BAYER [Concomitant]
  13. ZETIA [Concomitant]
  14. SERTRALINE [Concomitant]
  15. METOCLOPRAMIDE [Concomitant]
  16. NEXIUM [Concomitant]
  17. FORTEO [Concomitant]
  18. MULTI-VITAMIN [Concomitant]

REACTIONS (4)
  - ACCIDENTAL OVERDOSE [None]
  - DRUG ADMINISTRATION ERROR [None]
  - PRURITUS [None]
  - RASH MACULAR [None]
